FAERS Safety Report 16409670 (Version 3)
Quarter: 2019Q3

REPORT INFORMATION
  Report Type: Report from Study
  Country: CA (occurrence: CA)
  Receive Date: 20190610
  Receipt Date: 20190829
  Transmission Date: 20191004
  Serious: Yes (Other)
  Sender: FDA-Public Use
  Company Number: CA-JNJFOC-20190537982

PATIENT
  Age: 76 Year
  Sex: Male
  Weight: 82 kg

DRUGS (1)
  1. REMICADE [Suspect]
     Active Substance: INFLIXIMAB
     Indication: COLITIS ULCERATIVE
     Dosage: STRENGTH = 100 MG
     Route: 042
     Dates: start: 20090129

REACTIONS (10)
  - Haematochezia [Unknown]
  - Diarrhoea [Recovered/Resolved]
  - Atrial appendage closure [Unknown]
  - Atrial fibrillation [Unknown]
  - Mucous stools [Unknown]
  - Lung neoplasm malignant [Unknown]
  - Flatulence [Unknown]
  - Gastrointestinal motility disorder [Unknown]
  - Anal incontinence [Unknown]
  - Coagulopathy [Unknown]

NARRATIVE: CASE EVENT DATE: 2019
